FAERS Safety Report 25475846 (Version 1)
Quarter: 2025Q2

REPORT INFORMATION
  Report Type: Spontaneous
  Country: US (occurrence: US)
  Receive Date: 20250624
  Receipt Date: 20250624
  Transmission Date: 20250716
  Serious: Yes (Hospitalization)
  Sender: ABBVIE
  Company Number: US-ABBVIE-6339190

PATIENT
  Age: 80 Year
  Sex: Female
  Weight: 88.45 kg

DRUGS (2)
  1. IMBRUVICA [Suspect]
     Active Substance: IBRUTINIB
     Indication: Mantle cell lymphoma
     Dosage: FORM STRENGTH: 280 MILLIGRAM
     Route: 048
     Dates: start: 202506
  2. IMBRUVICA [Suspect]
     Active Substance: IBRUTINIB
     Indication: Mantle cell lymphoma
     Dosage: FORM STRENGTH: 420 MILLIGRAM
     Route: 048
     Dates: start: 202209, end: 202505

REACTIONS (4)
  - COVID-19 [Recovered/Resolved]
  - Influenza [Recovered/Resolved]
  - Dyspnoea [Recovering/Resolving]
  - Lung disorder [Not Recovered/Not Resolved]

NARRATIVE: CASE EVENT DATE: 20221201
